FAERS Safety Report 8321661-0 (Version None)
Quarter: 2012Q2

REPORT INFORMATION
  Report Type: 
  Country: None (occurrence: None)
  Receive Date: 20120430
  Receipt Date: 20120417
  Transmission Date: 20120825
  Serious: Yes (Disabling, Other)
  Sender: FDA-Public Use
  Company Number: NL-AMGEN-NLDSP2012004192

PATIENT
  Age: 64 Year
  Sex: Female

DRUGS (11)
  1. AMLODIPINE [Concomitant]
     Dosage: UNK
  2. METHOTREXATE [Suspect]
     Dosage: 10 MG, UNK
  3. ASCAL                              /00002702/ [Concomitant]
     Dosage: UNK
  4. FOLIC ACID [Concomitant]
     Dosage: UNK
  5. PLAQUENIL [Concomitant]
     Dosage: UNK
  6. BROMAZEPAM [Concomitant]
     Dosage: UNK
  7. SIMVASTATIN [Concomitant]
     Dosage: UNK
  8. PANTOPRAZOLE [Concomitant]
     Dosage: UNK
  9. ENBREL [Suspect]
     Dosage: UNK
     Dates: start: 20120214
  10. ENBREL [Suspect]
     Indication: RHEUMATOID ARTHRITIS
     Dosage: 50 MG, WEEKLY
     Dates: start: 20111116
  11. PAROXETINE HYDROCHLORIDE [Concomitant]
     Dosage: UNK

REACTIONS (8)
  - NASOPHARYNGITIS [None]
  - INFLUENZA [None]
  - SYNCOPE [None]
  - PAIN [None]
  - NAUSEA [None]
  - BALANCE DISORDER [None]
  - FATIGUE [None]
  - DIZZINESS [None]
